FAERS Safety Report 5176367-6 (Version None)
Quarter: 2006Q4

REPORT INFORMATION
  Report Type: 
  Country: None (occurrence: None)
  Receive Date: 20061207
  Receipt Date: 20061128
  Transmission Date: 20070319
  Serious: Yes (Hospitalization, Disabling)
  Sender: FDA-Public Use
  Company Number: TCI2006A03635

PATIENT
  Age: 77 Year
  Sex: Male

DRUGS (7)
  1. ACTOS [Suspect]
     Indication: DIABETES MELLITUS NON-INSULIN-DEPENDENT
     Dosage: 15 MG (15 MG, 1 IN 1 D), PER ORAL
     Route: 048
     Dates: start: 20060309, end: 20060607
  2. BASEN (VOGLIBOSE) [Concomitant]
  3. GLYBURIDE [Concomitant]
  4. SPELEAR (FUDOSTEINE) [Concomitant]
  5. NIVADIL (NILVADIPINE) [Concomitant]
  6. POLYRHITIN N (AMINOACETIC ACID, DL-METHIONINE, GLYCYRRHIZA GLABRA EXTR [Concomitant]
  7. PROPACALL (TICLOPIDINE HYDROHCLORIDE) [Concomitant]

REACTIONS (5)
  - ACUTE RESPIRATORY FAILURE [None]
  - CONDITION AGGRAVATED [None]
  - INTERSTITIAL LUNG DISEASE [None]
  - PULMONARY FIBROSIS [None]
  - RESPIRATORY TRACT INFECTION [None]
